FAERS Safety Report 7897571-X (Version None)
Quarter: 2011Q4

REPORT INFORMATION
  Report Type: 
  Country: None (occurrence: None)
  Receive Date: 20111028
  Receipt Date: 20110527
  Transmission Date: 20120403
  Serious: Yes (Other)
  Sender: FDA-Public Use
  Company Number: PHHY2011US40927

PATIENT
  Age: 10 Year
  Sex: Male

DRUGS (3)
  1. MIRALAX [Concomitant]
  2. FLONASE [Concomitant]
  3. TRILEPTAL [Suspect]
     Indication: CONVULSION
     Dosage: 12 ML, BID, ORAL
     Route: 048
     Dates: start: 20091001

REACTIONS (1)
  - CONVULSION [None]
